FAERS Safety Report 19432283 (Version 1)
Quarter: 2021Q2

REPORT INFORMATION
  Report Type: Spontaneous
  Country: US (occurrence: US)
  Receive Date: 20210617
  Receipt Date: 20210617
  Transmission Date: 20210717
  Serious: No
  Sender: FDA-Public Use
  Company Number: US-CATALYST PHARMACEUTICALS, INC-2021CAT00145

PATIENT
  Age: 76 Year
  Sex: Male
  Weight: 64.85 kg

DRUGS (11)
  1. FIRDAPSE [Suspect]
     Active Substance: AMIFAMPRIDINE PHOSPHATE
     Dosage: UNK
     Route: 048
     Dates: end: 20210411
  2. FIRDAPSE [Suspect]
     Active Substance: AMIFAMPRIDINE PHOSPHATE
     Indication: MYASTHENIC SYNDROME
     Dosage: 10 MG (1 PILL), 1X/DAY
     Route: 048
     Dates: start: 20210325, end: 20210325
  3. RED YEAST RICE [Concomitant]
     Active Substance: DIETARY SUPPLEMENT
     Dosage: 1 DOSAGE UNIT, 1X/DAY
  4. OMEPRAZOLE. [Concomitant]
     Active Substance: OMEPRAZOLE
  5. IBUPROFEN. [Concomitant]
     Active Substance: IBUPROFEN
     Dosage: AT NIGHT
  6. BIOTIN [Concomitant]
     Active Substance: BIOTIN
  7. FIRDAPSE [Suspect]
     Active Substance: AMIFAMPRIDINE PHOSPHATE
     Dosage: 10 MG (1 PILL), 1X/DAY
     Route: 048
     Dates: start: 20210327, end: 20210327
  8. UNSPECIFIED CHEMO [Suspect]
     Active Substance: UNSPECIFIED INGREDIENT
     Dosage: UNK
  9. TYLENOL [Concomitant]
     Active Substance: ACETAMINOPHEN
     Dosage: 650 UNK
  10. PYRIDOSTIGMINE [Concomitant]
     Active Substance: PYRIDOSTIGMINE
  11. FIRDAPSE [Suspect]
     Active Substance: AMIFAMPRIDINE PHOSPHATE
     Dosage: 30 MG (3 PILLS)
     Route: 048
     Dates: start: 20210326, end: 20210326

REACTIONS (10)
  - Lacrimation increased [Recovering/Resolving]
  - Rhinorrhoea [Recovering/Resolving]
  - Diarrhoea [Recovered/Resolved]
  - Malaise [Unknown]
  - Drug ineffective [Recovered/Resolved]
  - Abdominal pain upper [Unknown]
  - Hypophagia [Recovered/Resolved]
  - Weight decreased [Not Recovered/Not Resolved]
  - Arthralgia [Recovered/Resolved]
  - Headache [Recovered/Resolved]

NARRATIVE: CASE EVENT DATE: 2021
